FAERS Safety Report 5278393-5 (Version None)
Quarter: 2007Q1

REPORT INFORMATION
  Report Type: 
  Country: None (occurrence: None)
  Receive Date: 20061213
  Receipt Date: 20050811
  Transmission Date: 20070707
  Serious: No
  Sender: FDA-Public Use
  Company Number: 2005UW10782

PATIENT
  Age: 20 Year
  Sex: Male
  Weight: 207 kg

DRUGS (6)
  1. SEROQUEL [Suspect]
     Indication: AUTISM
     Dosage: 50 MG QAM PO
     Route: 048
     Dates: start: 20040907
  2. SEROQUEL [Suspect]
     Indication: BIPOLAR DISORDER
     Dosage: 50 MG QAM PO
     Route: 048
     Dates: start: 20040907
  3. SEROQUEL [Suspect]
     Indication: AUTISM
     Dosage: 200 MG HS PO
     Route: 048
     Dates: start: 20040907
  4. SEROQUEL [Suspect]
     Indication: BIPOLAR DISORDER
     Dosage: 200 MG HS PO
     Route: 048
     Dates: start: 20040907
  5. ESKALITH [Concomitant]
  6. ALLEGRA [Concomitant]

REACTIONS (1)
  - PRIAPISM [None]
